FAERS Safety Report 20007283 (Version 3)
Quarter: 2021Q4

REPORT INFORMATION
  Report Type: Report from Study
  Country: US (occurrence: US)
  Receive Date: 20211029
  Receipt Date: 20211203
  Transmission Date: 20220303
  Serious: Yes (Other)
  Sender: FDA-Public Use
  Company Number: US-ABBVIE-21K-163-4137992-00

PATIENT
  Sex: Female

DRUGS (2)
  1. HUMIRA [Suspect]
     Active Substance: ADALIMUMAB
     Indication: Psoriasis
     Dosage: CITRATE FREE
     Route: 058
  2. MODERNA COVID-19 VACCINE [Suspect]
     Active Substance: ELASOMERAN
     Indication: COVID-19 immunisation
     Route: 030

REACTIONS (12)
  - Exostosis [Recovered/Resolved]
  - Gastrointestinal procedural complication [Unknown]
  - Monoplegia [Unknown]
  - Intervertebral disc operation [Recovered/Resolved]
  - Staphylococcal infection [Recovered/Resolved]
  - Pulmonary embolism [Recovered/Resolved]
  - Procedural complication [Unknown]
  - Cyst [Unknown]
  - Weight decreased [Not Recovered/Not Resolved]
  - Post procedural infection [Unknown]
  - Abscess [Recovering/Resolving]
  - Post procedural infection [Not Recovered/Not Resolved]

NARRATIVE: CASE EVENT DATE: 20210101
